FAERS Safety Report 23458086 (Version 1)
Quarter: 2024Q1

REPORT INFORMATION
  Report Type: Spontaneous
  Country: FR (occurrence: FR)
  Receive Date: 20240130
  Receipt Date: 20240130
  Transmission Date: 20240409
  Serious: Yes (Death)
  Sender: FDA-Public Use
  Company Number: None

PATIENT
  Age: 36 Year
  Sex: Female

DRUGS (2)
  1. IBUPROFEN [Suspect]
     Active Substance: IBUPROFEN
     Indication: Headache
     Dosage: UNK
     Route: 048
     Dates: start: 202312
  2. ACETAMINOPHEN [Concomitant]
     Active Substance: ACETAMINOPHEN
     Indication: Headache
     Dosage: NOT SPECIFIED DOSE AND DURATION
     Route: 048
     Dates: start: 202312

REACTIONS (3)
  - Condition aggravated [Fatal]
  - Brain abscess [Fatal]
  - Acute sinusitis [Fatal]

NARRATIVE: CASE EVENT DATE: 20240106
